FAERS Safety Report 9325169 (Version 2)
Quarter: 2013Q4

REPORT INFORMATION
  Report Type: Spontaneous
  Country: US (occurrence: US)
  Receive Date: 20130604
  Receipt Date: 20131001
  Transmission Date: 20140711
  Serious: Yes (Hospitalization, Other)
  Sender: FDA-Public Use
  Company Number: US-B.I. PHARMACEUTICALS,INC./RIDGEFIELD-2013-BI-15197BP

PATIENT
  Age: 51 Year
  Sex: Male

DRUGS (8)
  1. TRADJENTA [Suspect]
     Indication: TYPE 2 DIABETES MELLITUS
     Dosage: 5 MG
     Route: 048
  2. METFORMIN [Concomitant]
     Indication: TYPE 2 DIABETES MELLITUS
  3. LIPITOR [Concomitant]
  4. HYDROCODONE [Concomitant]
  5. PROSTATIN [Concomitant]
  6. METHOCARBAMOL [Concomitant]
  7. VIAGRA [Concomitant]
  8. GLYCOSIDES [Concomitant]
     Indication: TYPE 2 DIABETES MELLITUS

REACTIONS (1)
  - Pancreatitis [Recovered/Resolved]
